FAERS Safety Report 5595560-1 (Version None)
Quarter: 2008Q1

REPORT INFORMATION
  Report Type: 
  Country: None (occurrence: None)
  Receive Date: 20080118
  Receipt Date: 20080110
  Transmission Date: 20080703
  Serious: Yes (Other)
  Sender: FDA-Public Use
  Company Number: PHNR2008AU00456

PATIENT
  Sex: Female

DRUGS (2)
  1. DESFERAL [Suspect]
     Indication: IRON OVERLOAD
     Dosage: 50 MG/KG/DAY
     Route: 042
  2. DESFERAL [Suspect]
     Route: 058

REACTIONS (1)
  - HYPOPHOSPHATAEMIA [None]
